FAERS Safety Report 8603527 (Version 2)
Quarter: 2014Q1

REPORT INFORMATION
  Report Type: Spontaneous
  Country: US (occurrence: None)
  Receive Date: 20120323
  Receipt Date: 20130305
  Transmission Date: 20141002
  Serious: Yes (Life-Threatening, Hospitalization, Other)
  Sender: FDA-Public Use
  Company Number: 163-21880-11102996

PATIENT
  Age: 72 Year
  Sex: Female
  Weight: 52.62 kg

DRUGS (21)
  1. REVLIMID [Suspect]
     Indication: PLASMA CELL MYELOMA
     Dosage: 15 MG, DAILY FOR 21 DAYS OFF 7 DAYS, PO
     Route: 048
     Dates: start: 20111017
  2. DEXAMETHASONE [Concomitant]
  3. LEVOTHYROXINE [Concomitant]
  4. DILAUDID (HYDROMORPHONE HYDROCHLORIDE) [Concomitant]
  5. ASPIRIN (ACETYLSALICYLIC ACID) [Concomitant]
  6. FENTANYL [Concomitant]
  7. HEPARIN [Suspect]
  8. ATIVAN (LORAZEPAM) [Concomitant]
  9. ASACOL (MESALAZINE) MODIFIED-RELEASE TABLET, 400 MG [Concomitant]
  10. REMERON (MIRTAZAPINE) [Concomitant]
  11. ZYPREXA (OLANZAPINE) [Concomitant]
  12. ZOFRAN (ONDANSETRON HYDROCHLORIDE) [Concomitant]
  13. PROTONIX [Concomitant]
  14. POTASSIUM [Concomitant]
  15. SIMVASTATIN [Concomitant]
  16. VANCOMYCIN [Concomitant]
  17. CEFEPIME [Concomitant]
  18. EFFEXOR (VENLAFIXINE HYDROCHLORIDE) [Concomitant]
  19. HYDROCORTISONE [Concomitant]
  20. BLOOD (BLOOD AND RELATED PRODUCTS) [Concomitant]
  21. ANTIBIOTICS [Concomitant]

REACTIONS (6)
  - Pneumonia [None]
  - Disorientation [None]
  - Dysarthria [None]
  - Back pain [None]
  - Somnolence [None]
  - Sepsis [None]
